FAERS Safety Report 6266736-5 (Version None)
Quarter: 2009Q3

REPORT INFORMATION
  Report Type: 
  Country: None (occurrence: None)
  Receive Date: 20090714
  Receipt Date: 20070831
  Transmission Date: 20100115
  Serious: Yes (Hospitalization)
  Sender: FDA-Public Use
  Company Number: US-ASTRAZENECA-2006UW21041

PATIENT
  Age: 12533 Day
  Sex: Female
  Weight: 73.5 kg

DRUGS (23)
  1. SEROQUEL [Suspect]
     Indication: DEPRESSION
     Route: 048
     Dates: start: 19990101, end: 20060601
  2. SEROQUEL [Suspect]
     Indication: SCHIZOPHRENIA
     Route: 048
     Dates: start: 19990101, end: 20060601
  3. SEROQUEL [Suspect]
     Indication: ANXIETY
     Route: 048
     Dates: start: 19990101, end: 20060601
  4. SEROQUEL [Suspect]
     Indication: MAJOR DEPRESSION
     Route: 048
     Dates: start: 19990101, end: 20060601
  5. SEROQUEL [Suspect]
     Indication: BIPOLAR DISORDER
     Route: 048
     Dates: start: 19990101, end: 20060601
  6. SEROQUEL [Suspect]
     Dosage: 200-600MG
     Route: 048
     Dates: start: 20000518, end: 20060707
  7. SEROQUEL [Suspect]
     Dosage: 200-600MG
     Route: 048
     Dates: start: 20000518, end: 20060707
  8. SEROQUEL [Suspect]
     Dosage: 200-600MG
     Route: 048
     Dates: start: 20000518, end: 20060707
  9. SEROQUEL [Suspect]
     Dosage: 200-600MG
     Route: 048
     Dates: start: 20000518, end: 20060707
  10. SEROQUEL [Suspect]
     Dosage: 200-600MG
     Route: 048
     Dates: start: 20000518, end: 20060707
  11. GEODON [Concomitant]
     Route: 048
  12. HALDOL [Concomitant]
     Route: 065
  13. LANTUS [Concomitant]
     Route: 058
  14. GLUCOVANCE [Concomitant]
     Route: 048
  15. BENAZEPRIL HYDROCHLORIDE [Concomitant]
     Route: 048
  16. EFFEXOR [Concomitant]
     Route: 048
  17. NEURONTIN [Concomitant]
     Route: 048
  18. ZOLOFT [Concomitant]
     Dosage: 25-150MG
     Route: 048
  19. PLENDIL [Concomitant]
     Dosage: 2.5-5 MG
     Route: 048
  20. STELAZINE [Concomitant]
     Route: 048
  21. FERROUS SULFATE TAB [Concomitant]
     Route: 048
  22. HYDROCHLOROTHIAZIDE [Concomitant]
     Route: 048
  23. METHYLDOPA [Concomitant]
     Route: 048

REACTIONS (4)
  - DIABETES MELLITUS [None]
  - GESTATIONAL DIABETES [None]
  - HYPERGLYCAEMIA [None]
  - MALAISE [None]
